FAERS Safety Report 5627566-8 (Version None)
Quarter: 2008Q1

REPORT INFORMATION
  Report Type: 
  Country: None (occurrence: None)
  Receive Date: 20080215
  Receipt Date: 20080109
  Transmission Date: 20080703
  Serious: No
  Sender: FDA-Public Use
  Company Number: A0702201A

PATIENT
  Age: 65 Year
  Sex: Female

DRUGS (13)
  1. COREG CR [Suspect]
     Indication: HYPERTENSION
     Dosage: 80MG PER DAY
     Route: 048
     Dates: start: 20070701
  2. PREMARIN [Concomitant]
  3. VISTARIL [Concomitant]
  4. ALTACE [Concomitant]
  5. ZANTAC [Concomitant]
  6. DIOVAN HCT [Concomitant]
  7. ZYRTEC [Concomitant]
  8. ACTOS [Concomitant]
  9. VYTORIN [Concomitant]
  10. VESICARE [Concomitant]
  11. LUMIGAN [Concomitant]
  12. COSOPT [Concomitant]
  13. METFORMIN HCL [Concomitant]

REACTIONS (1)
  - WEIGHT INCREASED [None]
